FAERS Safety Report 14553953 (Version 1)
Quarter: 2018Q1

REPORT INFORMATION
  Report Type: Spontaneous
  Country: ES (occurrence: ES)
  Receive Date: 20180220
  Receipt Date: 20180220
  Transmission Date: 20180509
  Serious: Yes (Death, Hospitalization)
  Sender: FDA-Public Use
  Company Number: ES-JUBILANT CADISTA PHARMACEUTICALS-2018JUB00037

PATIENT
  Age: 42 Year
  Sex: Male

DRUGS (5)
  1. CITALOPRAM [Suspect]
     Active Substance: CITALOPRAM HYDROBROMIDE
     Indication: DEPRESSION
     Dosage: 20 MG, 1X/DAY
     Route: 065
  2. ALCOHOL. [Concomitant]
     Active Substance: ALCOHOL
     Route: 065
  3. CITALOPRAM [Suspect]
     Active Substance: CITALOPRAM HYDROBROMIDE
     Dosage: 480 MG, ONCE
     Route: 065
  4. RED BULL [Suspect]
     Active Substance: DIETARY SUPPLEMENT
     Dosage: 1 TO 2 LITERS, 1X/DAY
     Route: 048
  5. TRYPTOPHAN-CONTAINING DIETARY SUPPLEMENTS [Suspect]
     Active Substance: DIETARY SUPPLEMENT
     Dosage: 600 MG, 1X/DAY
     Route: 065

REACTIONS (16)
  - Lactic acidosis [Fatal]
  - Leukopenia [None]
  - Acute kidney injury [None]
  - Acute respiratory failure [None]
  - Intentional overdose [Fatal]
  - Multiple organ dysfunction syndrome [Fatal]
  - Shock [Fatal]
  - Drug interaction [Fatal]
  - Hypoglycaemia [None]
  - Continuous haemodiafiltration [None]
  - Serotonin syndrome [Fatal]
  - Disseminated intravascular coagulation [Fatal]
  - Rhabdomyolysis [Fatal]
  - Therapy non-responder [None]
  - Cell death [None]
  - Completed suicide [None]
